FAERS Safety Report 18659621 (Version 1)
Quarter: 2020Q4

REPORT INFORMATION
  Report Type: Spontaneous
  Country: US (occurrence: US)
  Receive Date: 20201224
  Receipt Date: 20201224
  Transmission Date: 20210114
  Serious: Yes (Hospitalization, Other)
  Sender: FDA-Public Use
  Company Number: US-SA-2020SA361666

PATIENT

DRUGS (1)
  1. DIPHENHYDRAMINE. [Suspect]
     Active Substance: DIPHENHYDRAMINE
     Dosage: PILLS

REACTIONS (24)
  - Hallucination, auditory [Recovered/Resolved]
  - Mental status changes [Recovered/Resolved]
  - Pressure of speech [Recovered/Resolved]
  - Pyrexia [Recovered/Resolved]
  - Hypophagia [Recovered/Resolved]
  - Catatonia [Recovered/Resolved]
  - Hallucination, visual [Recovered/Resolved]
  - Tardive dyskinesia [Recovered/Resolved]
  - Ataxia [Recovered/Resolved]
  - Disorientation [Recovered/Resolved]
  - Rash erythematous [Recovered/Resolved]
  - Tongue movement disturbance [Recovered/Resolved]
  - Agitation [Recovered/Resolved]
  - Vomiting [Recovered/Resolved]
  - Tongue thrust [Recovered/Resolved]
  - Generalised tonic-clonic seizure [Recovered/Resolved]
  - Dry mouth [Recovered/Resolved]
  - Rash maculo-papular [Recovered/Resolved]
  - Intentional product misuse to child [Recovered/Resolved]
  - Insomnia [Recovered/Resolved]
  - Confusional state [Recovered/Resolved]
  - Hypertension [Recovered/Resolved]
  - Tachycardia [Recovered/Resolved]
  - Trismus [Recovered/Resolved]
